FAERS Safety Report 25731055 (Version 2)
Quarter: 2025Q3

REPORT INFORMATION
  Report Type: Spontaneous
  Country: JP (occurrence: JP)
  Receive Date: 20250827
  Receipt Date: 20250908
  Transmission Date: 20251021
  Serious: Yes (Other)
  Sender: MYLAN
  Company Number: JP-MYE-2025M1071858AA

PATIENT
  Age: 86 Year
  Sex: Female

DRUGS (4)
  1. ERYTHROCIN STEARATE [Suspect]
     Active Substance: ERYTHROMYCIN STEARATE
     Indication: Product used for unknown indication
  2. ERYTHROCIN STEARATE [Suspect]
     Active Substance: ERYTHROMYCIN STEARATE
     Route: 048
  3. ERYTHROCIN STEARATE [Suspect]
     Active Substance: ERYTHROMYCIN STEARATE
     Route: 048
  4. ERYTHROCIN STEARATE [Suspect]
     Active Substance: ERYTHROMYCIN STEARATE

REACTIONS (3)
  - Hallucination, auditory [Unknown]
  - Agitation [Unknown]
  - Delusion [Unknown]
